FAERS Safety Report 15352529 (Version 2)
Quarter: 2018Q3

REPORT INFORMATION
  Report Type: Spontaneous
  Country: DE (occurrence: DE)
  Receive Date: 20180905
  Receipt Date: 20180924
  Transmission Date: 20181010
  Serious: Yes (Hospitalization)
  Sender: FDA-Public Use
  Company Number: PHHY2018DE085941

PATIENT
  Sex: Male
  Weight: 56 kg

DRUGS (10)
  1. METOPROLOL. [Concomitant]
     Active Substance: METOPROLOL
     Indication: CARDIAC FAILURE
     Dosage: 50 MG, QD
     Route: 048
  2. AMYLASE [Concomitant]
     Active Substance: AMYLASE
     Indication: DIARRHOEA
     Dosage: 7500 IU (INTERNATIONAL UNIT)
     Route: 048
  3. PANTOPRAZOL [Concomitant]
     Active Substance: PANTOPRAZOLE SODIUM
     Indication: PROPHYLAXIS
     Dosage: 80 MG, QD
     Route: 048
  4. INSULIN GLARGINE [Concomitant]
     Active Substance: INSULIN GLARGINE
     Indication: DIABETES MELLITUS
     Dosage: 9999 IU, UNK
     Route: 058
  5. ABRAXANE [Suspect]
     Active Substance: PACLITAXEL
     Indication: NON-SMALL CELL LUNG CANCER
     Dosage: 100 MG/M2, UNK
     Route: 041
     Dates: start: 20180704, end: 20180711
  6. LEVOTHYROXIN [Concomitant]
     Active Substance: LEVOTHYROXINE
     Indication: HYPOTHYROIDISM
     Dosage: 100 MG, QD
     Route: 048
  7. INSULIN HUMAN [Concomitant]
     Active Substance: INSULIN HUMAN
     Indication: DIABETES MELLITUS
     Dosage: 9999 IU, UNK
     Route: 058
  8. CARBOPLATIN. [Suspect]
     Active Substance: CARBOPLATIN
     Indication: NON-SMALL CELL LUNG CANCER
     Dosage: 5 MG, UNK(MIN/ML)
     Route: 041
  9. ACETYLSALICYLIC ACID [Concomitant]
     Active Substance: ASPIRIN
     Indication: CARDIAC FAILURE
     Dosage: 100 MG, QD
     Route: 048
  10. TORASEMID [Concomitant]
     Active Substance: TORSEMIDE
     Indication: CARDIAC FAILURE
     Dosage: 10 MG, QD
     Route: 048

REACTIONS (3)
  - Leukopenia [Recovered/Resolved]
  - General physical health deterioration [Recovering/Resolving]
  - Hyperglycaemia [Recovered/Resolved]

NARRATIVE: CASE EVENT DATE: 20180712
